FAERS Safety Report 12934193 (Version 1)
Quarter: 2016Q4

REPORT INFORMATION
  Report Type: Spontaneous
  Country: AU (occurrence: AU)
  Receive Date: 20161111
  Receipt Date: 20161111
  Transmission Date: 20170207
  Serious: Yes (Life-Threatening)
  Sender: FDA-Public Use
  Company Number: AU-MYLANLABS-2016M1047990

PATIENT

DRUGS (2)
  1. MOBILIS D-20 [Suspect]
     Active Substance: PIROXICAM
     Indication: MUSCULOSKELETAL PAIN
  2. MOBILIS D-20 [Suspect]
     Active Substance: PIROXICAM
     Indication: TENDONITIS
     Dosage: 1 DF, QD
     Dates: start: 20161019, end: 20161022

REACTIONS (4)
  - Tremor [Recovered/Resolved]
  - Electric shock [Recovered/Resolved]
  - Chills [Recovered/Resolved]
  - Malaise [Unknown]

NARRATIVE: CASE EVENT DATE: 20161025
